FAERS Safety Report 12689895 (Version 4)
Quarter: 2016Q4

REPORT INFORMATION
  Report Type: Report from Study
  Country: DE (occurrence: DE)
  Receive Date: 20160826
  Receipt Date: 20161227
  Transmission Date: 20170207
  Serious: Yes (Other)
  Sender: FDA-Public Use
  Company Number: DE-PFIZER INC-2016398151

PATIENT
  Age: 29 Year
  Sex: Female

DRUGS (2)
  1. BISOPROLOL FUMARATE. [Suspect]
     Active Substance: BISOPROLOL FUMARATE
     Dosage: 0-0-1/2, DAILY
     Route: 048
  2. RAMIPRIL. [Suspect]
     Active Substance: RAMIPRIL
     Dosage: 1/2- 0-0, DAILY
     Route: 048

REACTIONS (4)
  - Dyspnoea [Unknown]
  - Pulmonary embolism [Unknown]
  - Deep vein thrombosis [Unknown]
  - Nausea [Unknown]

NARRATIVE: CASE EVENT DATE: 20160709
